FAERS Safety Report 6013323-X (Version None)
Quarter: 2008Q4

REPORT INFORMATION
  Report Type: 
  Country: None (occurrence: None)
  Receive Date: 20081219
  Receipt Date: 20081212
  Transmission Date: 20090506
  Serious: Yes (Other)
  Sender: FDA-Public Use
  Company Number: US-KINGPHARMUSA00001-K200801406

PATIENT
  Age: 38 Year
  Sex: Female

DRUGS (5)
  1. SKELAXIN [Suspect]
     Indication: TENSION
     Dosage: UNK
     Dates: start: 20080801, end: 20080101
  2. ALLEGRA D                          /01367401/ [Suspect]
     Indication: ALLERGY TEST
     Dosage: UNK
  3. LEXAPRO [Suspect]
     Indication: ANXIETY
     Dosage: 10 MG, QD
     Route: 048
     Dates: start: 20080911, end: 20080911
  4. LEXAPRO [Suspect]
     Dosage: 5 MG, QD
     Route: 048
     Dates: start: 20080913, end: 20080914
  5. NASAL PREPARATIONS [Suspect]
     Indication: SINUSITIS
     Dosage: UNK
     Dates: start: 20080101, end: 20080101

REACTIONS (6)
  - DRUG INTERACTION [None]
  - HEART RATE INCREASED [None]
  - HYPOAESTHESIA [None]
  - MYDRIASIS [None]
  - PANIC ATTACK [None]
  - PARAESTHESIA [None]
